FAERS Safety Report 11204883 (Version 1)
Quarter: 2015Q2

REPORT INFORMATION
  Report Type: Spontaneous
  Country: US (occurrence: None)
  Receive Date: 20150618
  Receipt Date: 20150618
  Transmission Date: 20150821
  Serious: Yes (Hospitalization)
  Sender: FDA-Public Use
  Company Number: None

PATIENT
  Age: 70 Year
  Sex: Male
  Weight: 60.6 kg

DRUGS (1)
  1. FOSINOPRIL [Suspect]
     Active Substance: FOSINOPRIL
     Indication: HYPERTENSION
     Route: 048
     Dates: start: 20080501, end: 20120803

REACTIONS (4)
  - Erythema multiforme [None]
  - Acute kidney injury [None]
  - Stevens-Johnson syndrome [None]
  - Ulcer [None]

NARRATIVE: CASE EVENT DATE: 20120729
